FAERS Safety Report 4815436-4 (Version None)
Quarter: 2005Q4

REPORT INFORMATION
  Report Type: 
  Country: None (occurrence: None)
  Receive Date: 20051031
  Receipt Date: 20051014
  Transmission Date: 20060501
  Serious: Yes (Other)
  Sender: FDA-Public Use
  Company Number: CA-BOEHRINGER INGELHEIM PHARMACEUTICALS, INC.-2005-DE-04288GD

PATIENT

DRUGS (2)
  1. IBUPROFEN [Suspect]
  2. MELOXICAM [Suspect]

REACTIONS (1)
  - NEPHROTIC SYNDROME [None]
